FAERS Safety Report 18329420 (Version 1)
Quarter: 2020Q3

REPORT INFORMATION
  Report Type: Spontaneous
  Country: HU (occurrence: HU)
  Receive Date: 20200930
  Receipt Date: 20200930
  Transmission Date: 20201103
  Serious: Yes (Life-Threatening, Hospitalization)
  Sender: FDA-Public Use
  Company Number: HU-ACCORD-202997

PATIENT
  Age: 12 Year
  Sex: Male

DRUGS (19)
  1. CARBAMAZEPINE. [Suspect]
     Active Substance: CARBAMAZEPINE
     Indication: PRODUCT USED FOR UNKNOWN INDICATION
  2. HALOPERIDOL. [Suspect]
     Active Substance: HALOPERIDOL
     Indication: MENTAL DISORDER
     Route: 042
  3. DIAZEPAM. [Suspect]
     Active Substance: DIAZEPAM
     Indication: CONFUSIONAL STATE
  4. DIAZEPAM. [Suspect]
     Active Substance: DIAZEPAM
     Indication: SEIZURE
  5. CARBAMAZEPINE. [Concomitant]
     Active Substance: CARBAMAZEPINE
     Indication: AGITATION
     Route: 048
  6. CLONAZEPAM. [Suspect]
     Active Substance: CLONAZEPAM
     Indication: SEIZURE
  7. HALOPERIDOL. [Concomitant]
     Active Substance: HALOPERIDOL
     Indication: AGITATION
     Route: 048
  8. PHENYTOIN. [Suspect]
     Active Substance: PHENYTOIN
     Indication: LOSS OF CONSCIOUSNESS
  9. PHENYTOIN. [Suspect]
     Active Substance: PHENYTOIN
     Indication: HYPERKINESIA
  10. DIAZEPAM. [Suspect]
     Active Substance: DIAZEPAM
     Indication: HYPERTONIA
  11. CLONAZEPAM. [Suspect]
     Active Substance: CLONAZEPAM
     Indication: CONFUSIONAL STATE
  12. DIAZEPAM. [Suspect]
     Active Substance: DIAZEPAM
     Indication: LOSS OF CONSCIOUSNESS
  13. PHENYTOIN. [Suspect]
     Active Substance: PHENYTOIN
     Indication: SEIZURE
  14. CLONAZEPAM. [Suspect]
     Active Substance: CLONAZEPAM
     Indication: LOSS OF CONSCIOUSNESS
  15. DIAZEPAM. [Suspect]
     Active Substance: DIAZEPAM
     Indication: HYPERKINESIA
  16. CLONAZEPAM. [Suspect]
     Active Substance: CLONAZEPAM
     Indication: HYPERTONIA
  17. PHENYTOIN. [Suspect]
     Active Substance: PHENYTOIN
     Indication: CONFUSIONAL STATE
  18. CLONAZEPAM. [Suspect]
     Active Substance: CLONAZEPAM
     Indication: HYPERKINESIA
  19. PHENYTOIN. [Suspect]
     Active Substance: PHENYTOIN
     Indication: HYPERTONIA

REACTIONS (3)
  - Neuroleptic malignant syndrome [Recovered/Resolved]
  - Seizure [Unknown]
  - Medication error [Unknown]
